FAERS Safety Report 9223554 (Version 1)
Quarter: 2013Q2

REPORT INFORMATION
  Report Type: Spontaneous
  Country: RU (occurrence: RU)
  Receive Date: 20130410
  Receipt Date: 20130410
  Transmission Date: 20140414
  Serious: Yes (Death)
  Sender: FDA-Public Use
  Company Number: RU-ASTRAZENECA-2013SE22935

PATIENT
  Sex: Female
  Weight: .7 kg

DRUGS (3)
  1. PULMICORT RESPULES [Suspect]
     Indication: BRONCHOPULMONARY DYSPLASIA
     Dosage: 0.25 MG WITH 2 ML OF SODIUM CHLORIDE, TWO TIMES A DAY
     Route: 055
  2. BERODUAL [Concomitant]
     Indication: BRONCHOPULMONARY DYSPLASIA
     Dosage: 4 DROPS TO 4 ML OF SODIUM CHLORIDE VIA NEBULISER
     Route: 055
  3. SODIUM CHLORIDE [Concomitant]

REACTIONS (3)
  - Oesophageal varices haemorrhage [Fatal]
  - Bronchopulmonary dysplasia [Fatal]
  - Aspiration [Fatal]
